FAERS Safety Report 9341610 (Version 1)
Quarter: 2013Q2

REPORT INFORMATION
  Report Type: Spontaneous
  Country: CA (occurrence: CA)
  Receive Date: 20130611
  Receipt Date: 20130611
  Transmission Date: 20140414
  Serious: Yes (Other)
  Sender: FDA-Public Use
  Company Number: CA-AMGEN-CANSP2013039865

PATIENT
  Age: 85 Year
  Sex: Female

DRUGS (1)
  1. PROLIA [Suspect]
     Indication: OSTEOPOROSIS POSTMENOPAUSAL
     Dosage: 60 MG, UNK
     Dates: start: 20120515, end: 20130516

REACTIONS (8)
  - Anaphylactic reaction [Unknown]
  - Obstructive airways disorder [Unknown]
  - Ear swelling [Unknown]
  - Local swelling [Unknown]
  - Oedema mouth [Unknown]
  - Infection [Unknown]
  - Hypersensitivity [Unknown]
  - Nasopharyngitis [Unknown]
